FAERS Safety Report 18203593 (Version 1)
Quarter: 2020Q3

REPORT INFORMATION
  Report Type: Spontaneous
  Country: PL (occurrence: PL)
  Receive Date: 20200827
  Receipt Date: 20200827
  Transmission Date: 20201103
  Serious: Yes (Hospitalization, Other)
  Sender: FDA-Public Use
  Company Number: PL-CELGENEUS-POL-20200805440

PATIENT
  Age: 77 Year

DRUGS (4)
  1. ABRAXANE [Suspect]
     Active Substance: PACLITAXEL
     Route: 065
     Dates: start: 20200731
  2. ABRAXANE [Suspect]
     Active Substance: PACLITAXEL
     Dosage: 8TH DAY OF THE 19TH TREATMENT COURSE
     Route: 065
     Dates: start: 20200727
  3. GEMCITABINE. [Concomitant]
     Active Substance: GEMCITABINE
     Indication: PANCREATIC CARCINOMA METASTATIC
     Route: 065
  4. ABRAXANE [Suspect]
     Active Substance: PACLITAXEL
     Indication: PANCREATIC CARCINOMA METASTATIC
     Route: 065

REACTIONS (5)
  - Pruritus [Unknown]
  - Thrombocytopenia [Unknown]
  - Ischaemic stroke [Unknown]
  - Neutropenia [Unknown]
  - Transaminases increased [Unknown]

NARRATIVE: CASE EVENT DATE: 2020
